APPROVED DRUG PRODUCT: NEDOCROMIL SODIUM
Active Ingredient: NEDOCROMIL SODIUM
Strength: 2%
Dosage Form/Route: SOLUTION/DROPS;OPHTHALMIC
Application: A090638 | Product #001
Applicant: EPIC PHARMA LLC
Approved: Aug 22, 2012 | RLD: No | RS: No | Type: DISCN